FAERS Safety Report 19309881 (Version 1)
Quarter: 2021Q2

REPORT INFORMATION
  Report Type: Spontaneous
  Country: US (occurrence: US)
  Receive Date: 20210526
  Receipt Date: 20210526
  Transmission Date: 20210717
  Serious: No
  Sender: FDA-Public Use
  Company Number: US-GLAUKOS-AVE-2021-0052-AE

PATIENT
  Age: 20 Year
  Sex: Male

DRUGS (4)
  1. KXL SYSTEM [Suspect]
     Active Substance: DEVICE
     Indication: KERATOCONUS
     Route: 047
     Dates: start: 20201214, end: 20201214
  2. UNSPECIFIED TOPICAL STEROID DROPS [Concomitant]
     Indication: PRODUCT USED FOR UNKNOWN INDICATION
     Dosage: TWICE DAILY
     Route: 047
     Dates: start: 20201214
  3. PHOTREXA [Suspect]
     Active Substance: RIBOFLAVIN 5^-PHOSPHATE SODIUM
     Indication: KERATOCONUS
     Route: 047
     Dates: start: 20201214, end: 20201214
  4. PHOTREXA VISCOUS [Suspect]
     Active Substance: RIBOFLAVIN 5^-PHOSPHATE SODIUM
     Indication: KERATOCONUS
     Route: 047
     Dates: start: 20201214, end: 20201214

REACTIONS (1)
  - Corneal dystrophy [Not Recovered/Not Resolved]

NARRATIVE: CASE EVENT DATE: 20210118
